FAERS Safety Report 19273696 (Version 1)
Quarter: 2021Q2

REPORT INFORMATION
  Report Type: Spontaneous
  Country: US (occurrence: US)
  Receive Date: 20210518
  Receipt Date: 20210518
  Transmission Date: 20210717
  Serious: Yes (Life-Threatening)
  Sender: FDA-Public Use
  Company Number: None

PATIENT
  Age: 85 Year
  Sex: Male
  Weight: 79.9 kg

DRUGS (1)
  1. SOTALOL. [Suspect]
     Active Substance: SOTALOL
     Indication: ATRIAL FIBRILLATION
     Dates: end: 20200105

REACTIONS (3)
  - Torsade de pointes [None]
  - Cardio-respiratory arrest [None]
  - Ventricular tachycardia [None]

NARRATIVE: CASE EVENT DATE: 20200105
